FAERS Safety Report 5316622-X (Version None)
Quarter: 2007Q2

REPORT INFORMATION
  Report Type: 
  Country: None (occurrence: None)
  Receive Date: 20070430
  Receipt Date: 20070430
  Transmission Date: 20071010
  Serious: Yes (Hospitalization)
  Sender: FDA-Public Use
  Company Number: None

PATIENT
  Sex: Female
  Weight: 79 kg

DRUGS (5)
  1. CYCLOPHOSPHAMIDE [Suspect]
     Dosage: 1100 MG
     Dates: end: 20070417
  2. DOXORUBICIN HYDROCHLORIDE [Suspect]
     Dosage: 111 MG
     Dates: end: 20070417
  3. ASPIRIN [Concomitant]
  4. LIPITOR [Concomitant]
  5. NORVASC [Concomitant]

REACTIONS (5)
  - FEELING HOT [None]
  - HYPERHIDROSIS [None]
  - LOSS OF CONSCIOUSNESS [None]
  - MYOCARDIAL INFARCTION [None]
  - NAUSEA [None]
